FAERS Safety Report 11474828 (Version 1)
Quarter: 2015Q3

REPORT INFORMATION
  Report Type: Spontaneous
  Country: NL (occurrence: NL)
  Receive Date: 20150908
  Receipt Date: 20150908
  Transmission Date: 20151125
  Serious: No
  Sender: FDA-Public Use
  Company Number: NL-JAZZ-2014-NL-017408

PATIENT
  Sex: Female

DRUGS (5)
  1. XYREM [Suspect]
     Active Substance: SODIUM OXYBATE
     Dosage: 4.5 G, BID
     Route: 048
     Dates: start: 20140929
  2. MODAFINIL. [Concomitant]
     Active Substance: MODAFINIL
     Dosage: 200 MG, BID
  3. MODAFINIL. [Concomitant]
     Active Substance: MODAFINIL
     Dosage: 100 MG, BID
  4. XYREM [Suspect]
     Active Substance: SODIUM OXYBATE
     Indication: NARCOLEPSY
     Dosage: UNKNOWN (DOSED ACCORDING TO REGULAR DOSING SCHEME)
     Route: 048
     Dates: start: 20140826, end: 2014
  5. MODAFINIL. [Concomitant]
     Active Substance: MODAFINIL
     Indication: PRODUCT USED FOR UNKNOWN INDICATION
     Dosage: 100 MG, QD
     Dates: start: 20131216

REACTIONS (1)
  - Visual acuity reduced [Not Recovered/Not Resolved]
